FAERS Safety Report 10182695 (Version 1)
Quarter: 2014Q2

REPORT INFORMATION
  Report Type: Spontaneous
  Country: US (occurrence: None)
  Receive Date: 20140516
  Receipt Date: 20140516
  Transmission Date: 20141212
  Serious: Yes (Life-Threatening, Hospitalization)
  Sender: FDA-Public Use
  Company Number: 2014P1004009

PATIENT
  Age: 35 Year
  Sex: Male

DRUGS (3)
  1. AMLODIPINE [Suspect]
     Route: 048
  2. METOPROLOL [Suspect]
     Route: 048
  3. VERAPAMIL [Suspect]
     Route: 048

REACTIONS (10)
  - Suicide attempt [None]
  - Sinus bradycardia [None]
  - Cardiac arrest [None]
  - Pulseless electrical activity [None]
  - Renal failure acute [None]
  - Hyperkalaemia [None]
  - Lactic acidosis [None]
  - Blood glucose increased [None]
  - Cardiogenic shock [None]
  - Hypoglycaemia [None]
